FAERS Safety Report 13084386 (Version 1)
Quarter: 2017Q1

REPORT INFORMATION
  Report Type: Spontaneous
  Country: US (occurrence: US)
  Receive Date: 20170102
  Receipt Date: 20170102
  Transmission Date: 20170428
  Serious: No
  Sender: FDA-Public Use
  Company Number: None

PATIENT
  Age: 53 Year
  Sex: Female
  Weight: 52 kg

DRUGS (2)
  1. REMERON [Suspect]
     Active Substance: MIRTAZAPINE
     Indication: POSTOPERATIVE CARE
     Route: 048
     Dates: start: 20161202, end: 20170102
  2. REMERON [Suspect]
     Active Substance: MIRTAZAPINE
     Indication: SPINAL FUSION SURGERY
     Route: 048
     Dates: start: 20161202, end: 20170102

REACTIONS (1)
  - Alopecia [None]

NARRATIVE: CASE EVENT DATE: 20170102
